FAERS Safety Report 12799304 (Version 3)
Quarter: 2016Q4

REPORT INFORMATION
  Report Type: Spontaneous
  Country: US (occurrence: US)
  Receive Date: 20160930
  Receipt Date: 20161007
  Transmission Date: 20170207
  Serious: No
  Sender: FDA-Public Use
  Company Number: US-PFIZER INC-2016456278

PATIENT
  Age: 61 Year
  Sex: Male
  Weight: 58.51 kg

DRUGS (1)
  1. LYRICA [Suspect]
     Active Substance: PREGABALIN
     Indication: PERIPHERAL SWELLING
     Dosage: 50 MG, UNK
     Dates: end: 20160928

REACTIONS (14)
  - Product use issue [Unknown]
  - Pain [Not Recovered/Not Resolved]
  - Muscle tightness [Unknown]
  - Burning sensation [Not Recovered/Not Resolved]
  - Joint swelling [Not Recovered/Not Resolved]
  - Decreased appetite [Not Recovered/Not Resolved]
  - Condition aggravated [Unknown]
  - Blood urine present [Unknown]
  - Withdrawal syndrome [Unknown]
  - Nervousness [Unknown]
  - Haemoptysis [Unknown]
  - Confusional state [Not Recovered/Not Resolved]
  - Gait disturbance [Not Recovered/Not Resolved]
  - Insomnia [Not Recovered/Not Resolved]

NARRATIVE: CASE EVENT DATE: 20160928
